FAERS Safety Report 7643594-5 (Version None)
Quarter: 2011Q3

REPORT INFORMATION
  Report Type: 
  Country: None (occurrence: None)
  Receive Date: 20110729
  Receipt Date: 20110722
  Transmission Date: 20111222
  Serious: No
  Sender: FDA-Public Use
  Company Number: US-BAYER-2011-064301

PATIENT
  Sex: Female

DRUGS (1)
  1. MIRENA [Suspect]
     Dosage: 20 ?G, CONT
     Route: 015
     Dates: start: 20080101, end: 20110201

REACTIONS (6)
  - UNEVALUABLE EVENT [None]
  - PAIN [None]
  - OVARIAN CYST [None]
  - HYPOMENORRHOEA [None]
  - MENSTRUATION IRREGULAR [None]
  - AMENORRHOEA [None]
